FAERS Safety Report 4650372-8 (Version None)
Quarter: 2005Q2

REPORT INFORMATION
  Report Type: 
  Country: None (occurrence: None)
  Receive Date: 20050429
  Receipt Date: 20050420
  Transmission Date: 20051028
  Serious: Yes (Hospitalization)
  Sender: FDA-Public Use
  Company Number: 2005PK00679

PATIENT
  Age: 54 Year
  Sex: Female
  Weight: 63 kg

DRUGS (3)
  1. NOLVADEX [Suspect]
     Indication: BREAST CANCER
     Dosage: 20- MG DAILY PO
     Route: 048
     Dates: start: 20010510, end: 20040415
  2. ZOLADEX [Suspect]
     Indication: BREAST CANCER
     Dosage: 3.6 MG Q4WK SQ
     Dates: start: 20010510, end: 20040415
  3. ZOLEDRONATE [Suspect]
     Indication: BREAST CANCER
     Dates: start: 20010510, end: 20040415

REACTIONS (1)
  - ENDOMETRIAL HYPERPLASIA [None]
